FAERS Safety Report 16183916 (Version 2)
Quarter: 2019Q2

REPORT INFORMATION
  Report Type: Spontaneous
  Country: JP (occurrence: JP)
  Receive Date: 20190411
  Receipt Date: 20190417
  Transmission Date: 20190711
  Serious: Yes (Other)
  Sender: FDA-Public Use
  Company Number: JP-EISAI MEDICAL RESEARCH-EC-2019-053597

PATIENT
  Age: 60 Year
  Sex: Male

DRUGS (2)
  1. LENVIMA [Suspect]
     Active Substance: LENVATINIB
     Indication: HEPATOCELLULAR CARCINOMA
     Route: 048
     Dates: start: 201902, end: 2019
  2. LENVIMA [Suspect]
     Active Substance: LENVATINIB
     Dosage: )
     Route: 048
     Dates: start: 2019

REACTIONS (5)
  - Protein induced by vitamin K absence or antagonist II increased [Unknown]
  - Proteinuria [Recovering/Resolving]
  - Alpha 1 foetoprotein increased [Unknown]
  - Hypertension [Unknown]
  - Weight decreased [Unknown]

NARRATIVE: CASE EVENT DATE: 201903
